FAERS Safety Report 23755989 (Version 1)
Quarter: 2024Q2

REPORT INFORMATION
  Report Type: Spontaneous
  Country: ZA (occurrence: None)
  Receive Date: 20240418
  Receipt Date: 20240418
  Transmission Date: 20240716
  Serious: Yes (Hospitalization)
  Sender: FDA-Public Use
  Company Number: 2024A089222

PATIENT
  Age: 73 Year
  Sex: Female

DRUGS (10)
  1. BUDESONIDE\FORMOTEROL FUMARATE DIHYDRATE [Suspect]
     Active Substance: BUDESONIDE\FORMOTEROL FUMARATE DIHYDRATE
     Dosage: UNKNOWN DOSAGE IN UNKNOWN FREQUENCY UNKNOWN
     Route: 055
  2. ALLOPURINOL [Concomitant]
     Active Substance: ALLOPURINOL
  3. AMIODARONE [Concomitant]
     Active Substance: AMIODARONE
  4. ESOMEPRAZOLE [Concomitant]
     Active Substance: ESOMEPRAZOLE
  5. FUROSEMIDE [Concomitant]
     Active Substance: FUROSEMIDE
  6. GLUCOPHAGE [Concomitant]
     Active Substance: METFORMIN HYDROCHLORIDE
  7. MONTELUKAST SODIUM [Concomitant]
     Active Substance: MONTELUKAST SODIUM
  8. POTASSIUM CHLORIDE [Concomitant]
     Active Substance: POTASSIUM CHLORIDE
  9. RIVAROXABAN [Concomitant]
     Active Substance: RIVAROXABAN
  10. SPIRACTIN [Concomitant]

REACTIONS (2)
  - Myocardial infarction [Unknown]
  - Chest pain [Unknown]
